FAERS Safety Report 4423983-2 (Version None)
Quarter: 2004Q3

REPORT INFORMATION
  Report Type: 
  Country: None (occurrence: None)
  Receive Date: 20040806
  Receipt Date: 20040720
  Transmission Date: 20050211
  Serious: No
  Sender: FDA-Public Use
  Company Number: JP_040603366

PATIENT
  Age: 78 Year
  Sex: Male
  Weight: 44 kg

DRUGS (14)
  1. VANCOMYCIN [Suspect]
     Indication: STAPHYLOCOCCAL INFECTION
     Dosage: 1000 MG/2 DAY
     Route: 042
     Dates: start: 20040120, end: 20040128
  2. LASIX [Concomitant]
  3. ADALAT [Concomitant]
  4. MEXITIL [Concomitant]
  5. FERROMIA (FERROUS CITRATE) [Concomitant]
  6. ALLOPURINOL [Concomitant]
  7. PARIET (RABEPRAZOLE SODIUM) [Concomitant]
  8. BLOPRESS (CANDESARTAN CILEXETIL) [Concomitant]
  9. DOXAZOSIN MESYLATE [Concomitant]
  10. MAGNESIUM OXIDE [Concomitant]
  11. CARNACULIN (PANCREAS EXTRACT) [Concomitant]
  12. EPADEL (ETHYL ICOSAPENTATE) [Concomitant]
  13. ASPARA K (ASPARTATE POTASSIUM) [Concomitant]
  14. KETALAR [Concomitant]

REACTIONS (3)
  - DEPRESSED LEVEL OF CONSCIOUSNESS [None]
  - RENAL IMPAIRMENT [None]
  - RESPIRATORY FAILURE [None]
